FAERS Safety Report 9733199 (Version 1)
Quarter: 2013Q4

REPORT INFORMATION
  Report Type: Spontaneous
  Country: JP (occurrence: JP)
  Receive Date: 20131205
  Receipt Date: 20131205
  Transmission Date: 20140711
  Serious: Yes (Hospitalization)
  Sender: FDA-Public Use
  Company Number: PHHY2013JP140981

PATIENT
  Age: 40 Year
  Sex: Female

DRUGS (10)
  1. CICLOSPORIN [Suspect]
     Indication: DRUG REACTION WITH EOSINOPHILIA AND SYSTEMIC SYMPTOMS
     Dosage: 100 MG, DAILY
     Route: 048
  2. PREDNISOLONE [Suspect]
     Dosage: 50 MG, DAILY
     Route: 048
  3. PREDNISOLONE [Suspect]
     Dosage: 15 MG, DAILY
     Route: 048
  4. PREDNISOLONE [Suspect]
     Dosage: 40 MG, DAILY
     Route: 048
  5. TACROLIMUS [Suspect]
     Dosage: 3 MG, DAILY
  6. BETAMETHASONE [Suspect]
     Dosage: 4 MG, DAILY
  7. BETAMETHASONE [Suspect]
     Dosage: 2 MG, DAILY
  8. BETAMETHASONE [Suspect]
     Dosage: 0.75 MG, DAILY
  9. BETAMETHASONE [Suspect]
     Dosage: 1.5 MG, DAILY
  10. IMMUNOGLOBULIN I.V [Concomitant]
     Route: 042

REACTIONS (7)
  - Rash [Recovering/Resolving]
  - Drug reaction with eosinophilia and systemic symptoms [Unknown]
  - Erythema [Unknown]
  - Pyrexia [Unknown]
  - Human herpesvirus 6 infection [Unknown]
  - Diffuse alopecia [Unknown]
  - Drug ineffective [Unknown]
